FAERS Safety Report 5644992-1 (Version None)
Quarter: 2008Q1

REPORT INFORMATION
  Report Type: 
  Country: None (occurrence: None)
  Receive Date: 20080229
  Receipt Date: 20071221
  Transmission Date: 20080703
  Serious: No
  Sender: FDA-Public Use
  Company Number: A0700288A

PATIENT
  Age: 55 Year
  Sex: Female

DRUGS (2)
  1. VALTREX [Suspect]
     Indication: GENITAL HERPES
     Dosage: 500MG THREE TIMES PER DAY
     Route: 048
     Dates: start: 20071218, end: 20071218
  2. LEVOXYL [Concomitant]

REACTIONS (6)
  - ABDOMINAL DISTENSION [None]
  - ABDOMINAL PAIN UPPER [None]
  - CONSTIPATION [None]
  - FLATULENCE [None]
  - MIGRAINE [None]
  - NAUSEA [None]
